FAERS Safety Report 9290704 (Version 1)
Quarter: 2013Q2

REPORT INFORMATION
  Report Type: Spontaneous
  Country: US (occurrence: US)
  Receive Date: 20130515
  Receipt Date: 20130515
  Transmission Date: 20140414
  Serious: No
  Sender: FDA-Public Use
  Company Number: US-TEVA-404673USA

PATIENT
  Sex: Female

DRUGS (3)
  1. PLAN B ONE-STEP [Suspect]
     Indication: POST COITAL CONTRACEPTION
     Dosage: 1.5 MILLIGRAM DAILY;
     Route: 048
     Dates: start: 20130423, end: 20130423
  2. OXYCODONE [Concomitant]
     Indication: BACK PAIN
  3. LORAZEPAM [Concomitant]
     Indication: ANXIETY
     Route: 048

REACTIONS (8)
  - Nipple disorder [Not Recovered/Not Resolved]
  - Abdominal distension [Not Recovered/Not Resolved]
  - Adnexa uteri pain [Not Recovered/Not Resolved]
  - Vaginal discharge [Not Recovered/Not Resolved]
  - Fatigue [Not Recovered/Not Resolved]
  - Breast tenderness [Not Recovered/Not Resolved]
  - Headache [Recovered/Resolved]
  - Off label use [Unknown]
